FAERS Safety Report 19515343 (Version 1)
Quarter: 2021Q3

REPORT INFORMATION
  Report Type: Spontaneous
  Country: CN (occurrence: CN)
  Receive Date: 20210709
  Receipt Date: 20210709
  Transmission Date: 20211014
  Serious: Yes (Death)
  Sender: FDA-Public Use
  Company Number: CN-ASTRAZENECA-2021A604700

PATIENT
  Age: 73 Year
  Sex: Male
  Weight: 44 kg

DRUGS (1)
  1. IMFINZI [Suspect]
     Active Substance: DURVALUMAB
     Indication: SQUAMOUS CELL CARCINOMA OF LUNG
     Dosage: 620.0MG UNKNOWN
     Route: 042
     Dates: start: 20200619

REACTIONS (1)
  - Death [Fatal]
